FAERS Safety Report 5162941-X (Version None)
Quarter: 2006Q4

REPORT INFORMATION
  Report Type: 
  Country: None (occurrence: None)
  Receive Date: 20061201
  Receipt Date: 20061122
  Transmission Date: 20070319
  Serious: Yes (Hospitalization)
  Sender: FDA-Public Use
  Company Number: BR-ROCHE-472501

PATIENT
  Age: 56 Year
  Sex: Female
  Weight: 63 kg

DRUGS (2)
  1. BONIVA [Suspect]
     Indication: OSTEOPENIA
     Route: 048
     Dates: start: 20061101, end: 20061101
  2. NAPRIX D [Concomitant]
     Indication: HYPERTENSION
     Route: 048
     Dates: end: 20061102

REACTIONS (7)
  - ARRHYTHMIA [None]
  - BLOOD PRESSURE INCREASED [None]
  - GASTRITIS [None]
  - HEART RATE INCREASED [None]
  - NAUSEA [None]
  - OESOPHAGITIS [None]
  - TREMOR [None]
